FAERS Safety Report 6940397-1 (Version None)
Quarter: 2010Q3

REPORT INFORMATION
  Report Type: 
  Country: None (occurrence: None)
  Receive Date: 20100820
  Receipt Date: 20100812
  Transmission Date: 20110219
  Serious: Yes (Death, Hospitalization, Other)
  Sender: FDA-Public Use
  Company Number: 2009-189203-NL

PATIENT
  Age: 36 Year
  Sex: Female
  Weight: 69.4 kg

DRUGS (5)
  1. NUVARING [Suspect]
     Indication: CONTRACEPTION
     Dosage: ;VAG
     Route: 067
     Dates: start: 20060101, end: 20070901
  2. LEXAPRO [Concomitant]
  3. CIPROFLOXACIN [Concomitant]
  4. BENZONATATE [Concomitant]
  5. ALBUTEROL [Concomitant]

REACTIONS (27)
  - ABDOMINAL PAIN [None]
  - ACUTE RESPIRATORY DISTRESS SYNDROME [None]
  - BLOOD PRESSURE FLUCTUATION [None]
  - BRAIN DEATH [None]
  - BRAIN HERNIATION [None]
  - BRAIN OEDEMA [None]
  - CANDIDIASIS [None]
  - CARDIAC ARREST [None]
  - COMA [None]
  - ELECTROMECHANICAL DISSOCIATION [None]
  - HEART RATE ABNORMAL [None]
  - HYPERNATRAEMIA [None]
  - HYPOAESTHESIA [None]
  - HYPOXIC-ISCHAEMIC ENCEPHALOPATHY [None]
  - INTRACRANIAL PRESSURE INCREASED [None]
  - MUSCLE STRAIN [None]
  - MUSCULOSKELETAL CHEST PAIN [None]
  - MUSCULOSKELETAL PAIN [None]
  - PAIN [None]
  - PELVIC PAIN [None]
  - PLEURAL EFFUSION [None]
  - PNEUMONIA [None]
  - PULMONARY EMBOLISM [None]
  - PUPIL FIXED [None]
  - RESPIRATORY ARREST [None]
  - UPPER RESPIRATORY TRACT INFECTION [None]
  - URINARY TRACT INFECTION [None]
